FAERS Safety Report 24257400 (Version 3)
Quarter: 2024Q3

REPORT INFORMATION
  Report Type: Spontaneous
  Country: CA (occurrence: CA)
  Receive Date: 20240828
  Receipt Date: 20240927
  Transmission Date: 20241017
  Serious: No
  Sender: Vantive US Healthcare
  Company Number: CA-VANTIVE-2024VAN017959

PATIENT
  Sex: Male

DRUGS (1)
  1. CALCIUM CL\DEXTROSE\MAGNESIUM CL\SODIUM BICAR\SODIUM CL\SODIUM LACT [Suspect]
     Active Substance: CALCIUM CHLORIDE\DEXTROSE MONOHYDRATE\MAGNESIUM CHLORIDE\SODIUM BICARBONATE\SODIUM CHLORIDE\SODIUM L
     Route: 033

REACTIONS (2)
  - Recalled product administered [Unknown]
  - No adverse event [Unknown]
